FAERS Safety Report 6993211-2 (Version None)
Quarter: 2010Q3

REPORT INFORMATION
  Report Type: 
  Country: None (occurrence: None)
  Receive Date: 20100917
  Receipt Date: 20070523
  Transmission Date: 20110219
  Serious: Yes (Hospitalization, Other)
  Sender: FDA-Public Use
  Company Number: US-ASTRAZENECA-2006UW11852

PATIENT
  Age: 13337 Day
  Sex: Female
  Weight: 116.6 kg

DRUGS (14)
  1. SEROQUEL [Suspect]
     Indication: PANIC ATTACK
     Route: 048
     Dates: start: 19990114
  2. SEROQUEL [Suspect]
     Indication: ANXIETY DISORDER
     Route: 048
     Dates: start: 19990114
  3. SEROQUEL [Suspect]
     Dosage: 600 - 900 MG
     Route: 048
     Dates: start: 20021115
  4. SEROQUEL [Suspect]
     Dosage: 600 - 900 MG
     Route: 048
     Dates: start: 20021115
  5. ZYPREXA [Suspect]
  6. GLUCOPHAGE [Concomitant]
     Route: 048
     Dates: start: 20000929
  7. GLUCOTROL XL [Concomitant]
     Route: 048
     Dates: start: 20060308
  8. LOTENSIN [Concomitant]
     Route: 048
     Dates: start: 20000929
  9. WELLBUTRIN [Concomitant]
     Route: 048
     Dates: start: 19950929
  10. HUMULIN 70/30 [Concomitant]
     Route: 058
     Dates: start: 20000828
  11. XANAX [Concomitant]
     Route: 048
     Dates: start: 20050727
  12. TOPAMAX [Concomitant]
     Route: 048
     Dates: start: 20050527
  13. PROZAC [Concomitant]
     Route: 048
     Dates: start: 19990302
  14. PRILOSEC [Concomitant]
     Route: 048
     Dates: start: 20000928

REACTIONS (4)
  - DIABETES MELLITUS [None]
  - DIABETES MELLITUS INADEQUATE CONTROL [None]
  - DIABETIC KETOACIDOSIS [None]
  - HYPERGLYCAEMIA [None]
